FAERS Safety Report 9718819 (Version 2)
Quarter: 2013Q4

REPORT INFORMATION
  Report Type: Report from Study
  Country: US (occurrence: US)
  Receive Date: 20131127
  Receipt Date: 20131213
  Transmission Date: 20140711
  Serious: Yes (Hospitalization)
  Sender: FDA-Public Use
  Company Number: US-GLAXOSMITHKLINE-B0947081A

PATIENT
  Age: 79 Year
  Sex: Female
  Weight: 88.8 kg

DRUGS (15)
  1. FLUTICASONE FUROATE [Suspect]
     Indication: CHRONIC OBSTRUCTIVE PULMONARY DISEASE
     Dates: start: 20130214
  2. CETIRIZINE [Concomitant]
     Indication: HYPERSENSITIVITY
     Dosage: 5MG PER DAY
     Route: 048
     Dates: start: 2000
  3. LISINOPRIL [Concomitant]
     Indication: HYPERTENSION
     Dosage: 5MG PER DAY
     Route: 048
     Dates: start: 20130111
  4. FUROSEMIDE [Concomitant]
     Indication: DIURETIC THERAPY
     Dosage: 20MG PER DAY
     Route: 048
     Dates: start: 2011
  5. HYDROCHLOROTHIAZIDE [Concomitant]
     Indication: CARDIAC FAILURE CONGESTIVE
     Dosage: 25MG PER DAY
     Route: 048
     Dates: start: 2011
  6. HYDROCODONE [Concomitant]
     Indication: BACK PAIN
     Dosage: 2.5MG THREE TIMES PER DAY
     Route: 048
     Dates: start: 2013, end: 20131007
  7. METOPROLOL [Concomitant]
     Indication: HYPERTENSION
     Route: 048
     Dates: start: 2011
  8. ASA [Concomitant]
     Indication: CARDIAC DISORDER
     Dosage: 81MG PER DAY
     Route: 048
     Dates: start: 2008
  9. OMEPRAZOLE [Concomitant]
     Indication: GASTROOESOPHAGEAL REFLUX DISEASE
     Dosage: 20MG PER DAY
     Route: 048
     Dates: start: 2009
  10. SENNA [Concomitant]
     Indication: LAXATIVE SUPPORTIVE CARE
     Dosage: 8.6MG TWICE PER DAY
     Route: 048
     Dates: start: 201301, end: 20130513
  11. TRIAMCINOLONE [Concomitant]
     Indication: CELLULITIS
     Dosage: .1PCT TWICE PER DAY
     Route: 061
     Dates: start: 201301
  12. VIT D [Concomitant]
     Indication: BONE DENSITY ABNORMAL
     Route: 048
     Dates: start: 2011
  13. CYMBALTA [Concomitant]
     Indication: DEPRESSION
     Dosage: 30MG PER DAY
     Route: 048
     Dates: start: 20130312
  14. PRAVASTATIN [Concomitant]
     Indication: BLOOD CHOLESTEROL
     Dosage: 40MG PER DAY
     Route: 048
     Dates: start: 20130310
  15. COMBIVENT [Concomitant]
     Indication: CHRONIC OBSTRUCTIVE PULMONARY DISEASE
     Route: 055
     Dates: start: 20130131

REACTIONS (3)
  - Infective exacerbation of chronic obstructive airways disease [Recovered/Resolved]
  - Acidosis [Recovered/Resolved]
  - Carbon dioxide increased [Recovered/Resolved]
